FAERS Safety Report 5144789-5 (Version None)
Quarter: 2006Q4

REPORT INFORMATION
  Report Type: 
  Country: None (occurrence: None)
  Receive Date: 20061103
  Receipt Date: 20061103
  Transmission Date: 20070319
  Serious: Yes (Other)
  Sender: FDA-Public Use
  Company Number: None

PATIENT
  Sex: Female

DRUGS (1)
  1. PARAGARD T 380A [Suspect]
     Dosage: MODEL T380
     Route: 015
     Dates: start: 19960920

REACTIONS (2)
  - COMPLICATION OF DEVICE REMOVAL [None]
  - IUCD COMPLICATION [None]
